FAERS Safety Report 12185255 (Version 1)
Quarter: 2016Q1

REPORT INFORMATION
  Report Type: Spontaneous
  Country: US (occurrence: US)
  Receive Date: 20160316
  Receipt Date: 20160316
  Transmission Date: 20160526
  Serious: Yes (Hospitalization, Other)
  Sender: FDA-Public Use
  Company Number: US-DSJP-DSU-2015-139880

PATIENT

DRUGS (3)
  1. BENICAR HCT [Suspect]
     Active Substance: HYDROCHLOROTHIAZIDE\OLMESARTAN MEDOXOMIL
     Indication: HYPERTENSION
     Dosage: 40MG/25MG, QD
     Dates: start: 2010, end: 20140620
  2. BENICAR [Suspect]
     Active Substance: OLMESARTAN MEDOXOMIL
     Indication: HYPERTENSION
     Dosage: 20 MG, QD
     Dates: start: 2003, end: 2009
  3. BENICAR [Suspect]
     Active Substance: OLMESARTAN MEDOXOMIL
     Dosage: 40 MG, QD
     Dates: start: 20031124, end: 20091009

REACTIONS (12)
  - Chronic gastritis [Unknown]
  - Haemorrhoids [Unknown]
  - Gastrooesophageal reflux disease [Unknown]
  - Malabsorption [Unknown]
  - Anaemia [Unknown]
  - Diverticulum [Unknown]
  - Peptic ulcer [Unknown]
  - Enteritis [Unknown]
  - Renal cyst [Unknown]
  - Coeliac disease [Unknown]
  - Acute kidney injury [Unknown]
  - Incontinence [Unknown]

NARRATIVE: CASE EVENT DATE: 2005
